FAERS Safety Report 4485720-5 (Version None)
Quarter: 2004Q4

REPORT INFORMATION
  Report Type: 
  Country: None (occurrence: None)
  Receive Date: 20041026
  Receipt Date: 20041020
  Transmission Date: 20050328
  Serious: Yes (Life-Threatening, Hospitalization)
  Sender: FDA-Public Use
  Company Number: FR-GLAXOSMITHKLINE-B0348677A

PATIENT
  Age: 85 Year
  Sex: Male
  Weight: 42 kg

DRUGS (5)
  1. CLAMOXYL [Suspect]
     Indication: ENDOCARDITIS
     Dosage: 2G FOUR TIMES PER DAY
     Route: 042
     Dates: start: 20040806
  2. PREVISCAN [Suspect]
     Dosage: 5MG PER DAY
     Route: 048
     Dates: start: 20040122, end: 20040823
  3. GENTAMICIN [Suspect]
     Indication: ENDOCARDITIS
     Route: 042
     Dates: start: 20040806
  4. HEMIGOXINE NATIVELLE [Concomitant]
     Dosage: 1UNIT PER DAY
     Route: 048
  5. MOPRAL [Concomitant]
     Dosage: 20MG PER DAY
     Route: 048

REACTIONS (4)
  - DRUG INTERACTION [None]
  - ENDOCARDITIS [None]
  - HAEMATOMA [None]
  - PROTHROMBIN TIME PROLONGED [None]
